FAERS Safety Report 10889358 (Version 1)
Quarter: 2015Q1

REPORT INFORMATION
  Report Type: Spontaneous
  Country: IT (occurrence: IT)
  Receive Date: 20150305
  Receipt Date: 20150305
  Transmission Date: 20150721
  Serious: Yes (Other)
  Sender: FDA-Public Use
  Company Number: IT-PFIZER INC-2015078093

PATIENT
  Age: 67 Year
  Sex: Female

DRUGS (3)
  1. TRIATEC [Concomitant]
     Active Substance: RAMIPRIL
  2. HALCION [Suspect]
     Active Substance: TRIAZOLAM
     Dosage: 5 DF, SINGLE
     Route: 048
     Dates: start: 20150227, end: 20150227
  3. TAVOR [Suspect]
     Active Substance: LORAZEPAM
     Dosage: 5 DF, SINGLE
     Route: 048
     Dates: start: 20150227, end: 20150227

REACTIONS (4)
  - Drug abuse [Recovering/Resolving]
  - Bradyphrenia [Recovering/Resolving]
  - Intentional overdose [Recovering/Resolving]
  - Bradykinesia [Recovering/Resolving]

NARRATIVE: CASE EVENT DATE: 20150227
